FAERS Safety Report 11383244 (Version 3)
Quarter: 2015Q4

REPORT INFORMATION
  Report Type: Report from Study
  Country: NL (occurrence: NL)
  Receive Date: 20150814
  Receipt Date: 20151012
  Transmission Date: 20160304
  Serious: Yes (Death, Life-Threatening)
  Sender: FDA-Public Use
  Company Number: NL-ABBVIE-15P-114-1442279-00

PATIENT
  Age: 71 Year
  Sex: Male
  Weight: 63.8 kg

DRUGS (1)
  1. DUODOPA [Suspect]
     Active Substance: CARBIDOPA\LEVODOPA
     Indication: PARKINSON^S DISEASE
     Dosage: 20/5MG/ML; CONTINUOUS; SEE NARRATIVE
     Route: 050
     Dates: start: 20110216, end: 20150813

REACTIONS (2)
  - Acute abdomen [Fatal]
  - Terminal state [Fatal]

NARRATIVE: CASE EVENT DATE: 20150807
